FAERS Safety Report 13862107 (Version 1)
Quarter: 2017Q3

REPORT INFORMATION
  Report Type: Spontaneous
  Country: US (occurrence: US)
  Receive Date: 20170812
  Receipt Date: 20170812
  Transmission Date: 20171127
  Serious: No
  Sender: FDA-Public Use
  Company Number: US-TEVA-794658USA

PATIENT
  Age: 25 Year
  Sex: Male
  Weight: 99.88 kg

DRUGS (3)
  1. SINGULAIR [Concomitant]
     Active Substance: MONTELUKAST SODIUM
     Indication: ASTHMA
  2. ADVAIR HFA [Concomitant]
     Active Substance: FLUTICASONE PROPIONATE\SALMETEROL XINAFOATE
     Indication: ASTHMA
  3. PROAIR HFA [Suspect]
     Active Substance: ALBUTEROL SULFATE
     Indication: ASTHMA
     Dosage: TWO TO FOUR PUFFS EVERY FOUR HOURS AS NEEDED
     Dates: end: 20170801

REACTIONS (1)
  - Forced vital capacity decreased [Unknown]

NARRATIVE: CASE EVENT DATE: 20170519
